FAERS Safety Report 4406254-X (Version None)
Quarter: 2004Q3

REPORT INFORMATION
  Report Type: 
  Country: None (occurrence: None)
  Receive Date: 20040723
  Receipt Date: 20030418
  Transmission Date: 20050211
  Serious: No
  Sender: FDA-Public Use
  Company Number: US-GLAXOSMITHKLINE-A0405406A

PATIENT
  Age: 56 Year
  Sex: Female
  Weight: 114.5 kg

DRUGS (3)
  1. AVANDIA [Suspect]
     Dosage: 4MG TWICE PER DAY
     Route: 048
     Dates: start: 19990101, end: 20030101
  2. GLUCOPHAGE [Suspect]
     Dosage: 500MG TWICE PER DAY
     Route: 048
     Dates: start: 19990101, end: 20030101
  3. CELEBREX [Concomitant]
     Dosage: 200MG PER DAY
     Route: 048
     Dates: end: 20030101

REACTIONS (2)
  - SWELLING [None]
  - WEIGHT INCREASED [None]
